FAERS Safety Report 6608791-6 (Version None)
Quarter: 2010Q1

REPORT INFORMATION
  Report Type: 
  Country: None (occurrence: None)
  Receive Date: 20100224
  Receipt Date: 20100224
  Transmission Date: 20100710
  Serious: No
  Sender: FDA-Public Use
  Company Number: None

PATIENT
  Sex: Male
  Weight: 63.5036 kg

DRUGS (3)
  1. SELEGILINE HCL [Suspect]
     Dosage: 6MG PATCH TRANSDERMAL
     Route: 062
  2. LORAZEPAM [Concomitant]
  3. RISPERIDONE [Concomitant]

REACTIONS (2)
  - APPLICATION SITE ERYTHEMA [None]
  - APPLICATION SITE IRRITATION [None]
